FAERS Safety Report 5196118-9 (Version None)
Quarter: 2006Q4

REPORT INFORMATION
  Report Type: 
  Country: None (occurrence: None)
  Receive Date: 20061226
  Receipt Date: 20061222
  Transmission Date: 20070319
  Serious: Yes (Hospitalization)
  Sender: FDA-Public Use
  Company Number: FRWYE924421DEC06

PATIENT
  Age: 14 Year
  Sex: Female

DRUGS (2)
  1. ADVIL [Suspect]
     Dosage: 2 DOSE FORM BY DAY ORAL
     Route: 048
     Dates: start: 20061109, end: 20061110
  2. LEVOCETIRIZINE DIHYDROCHLORIDE [Suspect]
     Dosage: 1 DOSE 1X PER 1 DAY ORAL
     Route: 048
     Dates: start: 20061109, end: 20061110

REACTIONS (9)
  - ACIDOSIS [None]
  - C-REACTIVE PROTEIN INCREASED [None]
  - HYPOCHLORAEMIA [None]
  - MICROCYTIC ANAEMIA [None]
  - PALLOR [None]
  - PLATELET COUNT INCREASED [None]
  - RENAL FAILURE ACUTE [None]
  - TRANSFERRIN DECREASED [None]
  - WEIGHT DECREASED [None]
